FAERS Safety Report 9143173 (Version 1)
Quarter: 2013Q1

REPORT INFORMATION
  Report Type: Spontaneous
  Country: US (occurrence: US)
  Receive Date: 20130306
  Receipt Date: 20130306
  Transmission Date: 20140127
  Serious: No
  Sender: FDA-Public Use
  Company Number: US-ENDO PHARMACEUTICALS INC.-OPER20110244

PATIENT
  Age: 37 None
  Sex: Female

DRUGS (5)
  1. OPANA ER [Suspect]
     Indication: NECK PAIN
     Route: 048
     Dates: end: 2012
  2. OPANA ER [Suspect]
     Indication: ABDOMINAL PAIN
     Route: 048
     Dates: start: 20110824
  3. OPANA ER [Suspect]
     Indication: ARTHRALGIA
     Route: 048
     Dates: end: 20110824
  4. LYRICA [Concomitant]
     Indication: PRODUCT USED FOR UNKNOWN INDICATION
     Dosage: UNKNOWN
     Route: 048
  5. AMBIEN [Concomitant]
     Indication: INSOMNIA
     Dosage: UNKNOWN
     Route: 048

REACTIONS (4)
  - Ankle operation [Unknown]
  - Weight increased [Unknown]
  - Dysuria [Unknown]
  - Drug ineffective [Recovered/Resolved]
